FAERS Safety Report 7548615-6 (Version None)
Quarter: 2011Q2

REPORT INFORMATION
  Report Type: 
  Country: None (occurrence: None)
  Receive Date: 20110615
  Receipt Date: 20110603
  Transmission Date: 20111010
  Serious: Yes (Death)
  Sender: FDA-Public Use
  Company Number: US-CTI_01362_2011

PATIENT
  Age: 48 Year
  Sex: Male

DRUGS (1)
  1. ALLERX [Suspect]
     Indication: SINUS CONGESTION
     Dosage: DF
     Dates: start: 20110101

REACTIONS (3)
  - SUDDEN DEATH [None]
  - CONSTIPATION [None]
  - DYSPNOEA [None]
